FAERS Safety Report 20345908 (Version 2)
Quarter: 2022Q1

REPORT INFORMATION
  Report Type: Spontaneous
  Country: AR (occurrence: AR)
  Receive Date: 20220118
  Receipt Date: 20220127
  Transmission Date: 20220423
  Serious: Yes (Hospitalization)
  Sender: FDA-Public Use
  Company Number: AR-PFIZER INC-202200018605

PATIENT
  Age: 63 Year
  Sex: Male

DRUGS (1)
  1. INLYTA [Suspect]
     Active Substance: AXITINIB
     Indication: Renal cancer
     Dosage: 5 MG, DAILY
     Dates: start: 20200508

REACTIONS (4)
  - Haemolysis [Not Recovered/Not Resolved]
  - Haemorrhage [Not Recovered/Not Resolved]
  - Visual impairment [Unknown]
  - Off label use [Unknown]

NARRATIVE: CASE EVENT DATE: 20200508
